FAERS Safety Report 5797817-8 (Version None)
Quarter: 2008Q3

REPORT INFORMATION
  Report Type: 
  Country: None (occurrence: None)
  Receive Date: 20080702
  Receipt Date: 20080626
  Transmission Date: 20090109
  Serious: Yes (Hospitalization, Other)
  Sender: FDA-Public Use
  Company Number: US-JNJFOC-20080602062

PATIENT
  Sex: Female
  Weight: 58.06 kg

DRUGS (14)
  1. REMICADE [Suspect]
     Route: 042
  2. REMICADE [Suspect]
     Indication: RHEUMATOID ARTHRITIS
     Route: 042
  3. REMICADE [Suspect]
     Indication: PSORIATIC ARTHROPATHY
     Dosage: TAKING FOR 9 YEARS
     Route: 042
  4. METHOTREXATE [Concomitant]
     Indication: PSORIATIC ARTHROPATHY
     Dosage: 20 YEARS
  5. FOLIC ACID [Concomitant]
     Indication: PROPHYLAXIS
     Dosage: 10 YEARS
  6. FLAGYL [Concomitant]
     Dosage: 30 DAYS
  7. MELOXICAM [Concomitant]
     Indication: PSORIATIC ARTHROPATHY
     Dosage: 8 YEARS
  8. BALTREX [Concomitant]
     Indication: ORAL HERPES
     Dosage: 3 YEARS
  9. POTASSIUM CHLORIDE [Concomitant]
     Indication: FLUID RETENTION
     Dosage: 4 YEARS
  10. CALCIUM [Concomitant]
     Indication: BONE DISORDER
     Dosage: MANY YEARS
  11. CENTRUM MULTIVITAMIN [Concomitant]
     Indication: VITAMIN SUPPLEMENTATION
     Dosage: 20 YEARS
  12. VITAMIN E [Concomitant]
     Indication: VITAMIN SUPPLEMENTATION
     Dosage: 20 YEARS
  13. FLAXSEED OIL [Concomitant]
     Indication: COLITIS
     Dosage: 4 YEARS
  14. FISH OIL [Concomitant]
     Indication: COLITIS
     Dosage: 4 YEARS

REACTIONS (2)
  - COLITIS [None]
  - OSTEOMYELITIS [None]
